FAERS Safety Report 6174099-9 (Version None)
Quarter: 2009Q2

REPORT INFORMATION
  Report Type: 
  Country: None (occurrence: None)
  Receive Date: 20090430
  Receipt Date: 20090423
  Transmission Date: 20091009
  Serious: Yes (Other)
  Sender: FDA-Public Use
  Company Number: PHHY2009CA15557

PATIENT
  Age: 74 Year

DRUGS (3)
  1. DIOVAN [Suspect]
     Indication: HYPERTENSION
     Dosage: 80 MG, QD
  2. CRESTOR [Concomitant]
  3. SYNTHROID [Concomitant]

REACTIONS (1)
  - BILIARY CIRRHOSIS [None]
